FAERS Safety Report 10193006 (Version 1)
Quarter: 2014Q2

REPORT INFORMATION
  Report Type: Report from Study
  Country: CO (occurrence: CO)
  Receive Date: 20140524
  Receipt Date: 20140524
  Transmission Date: 20141212
  Serious: Yes (Hospitalization)
  Sender: FDA-Public Use
  Company Number: CO-ABBVIE-14K-036-1240594-00

PATIENT
  Age: 3 Month
  Sex: Female
  Weight: 3.1 kg

DRUGS (1)
  1. SYNAGIS [Suspect]
     Indication: PREMATURE BABY
     Route: 030
     Dates: start: 20140113, end: 20140318

REACTIONS (2)
  - Respiratory distress [Recovered/Resolved]
  - Respiratory syncytial virus bronchiolitis [Recovered/Resolved]
